FAERS Safety Report 4439670-0 (Version None)
Quarter: 2004Q3

REPORT INFORMATION
  Report Type: 
  Country: None (occurrence: None)
  Receive Date: 20040831
  Receipt Date: 20040831
  Transmission Date: 20050211
  Serious: Yes (Hospitalization)
  Sender: FDA-Public Use
  Company Number: None

PATIENT
  Age: 73 Year
  Sex: Female
  Weight: 38.1022 kg

DRUGS (11)
  1. TEMOZOLOMIDE [Suspect]
     Indication: ASTROCYTOMA
     Dosage: 1900 MG /CYCLE PO X 3 CYCLES
     Route: 048
     Dates: start: 20040609, end: 20040808
  2. DECADRON [Concomitant]
  3. PREVACID [Concomitant]
  4. AVALIDE [Concomitant]
  5. HYDROCHLOROTHIAZIDE [Concomitant]
  6. LIPITOR [Concomitant]
  7. TAPAZOLE [Concomitant]
  8. NORVASC [Concomitant]
  9. MULTIVIT [Concomitant]
  10. ALBUTEROL [Concomitant]
  11. ADVAIR DISKUS 100/50 [Concomitant]

REACTIONS (3)
  - BRAIN OEDEMA [None]
  - CONDITION AGGRAVATED [None]
  - HEMIPARESIS [None]
